FAERS Safety Report 7754296-9 (Version None)
Quarter: 2011Q3

REPORT INFORMATION
  Report Type: 
  Country: None (occurrence: None)
  Receive Date: 20110915
  Receipt Date: 20110902
  Transmission Date: 20111222
  Serious: Yes (Other)
  Sender: FDA-Public Use
  Company Number: SG-BAYER-2011-080311

PATIENT
  Age: 80 Year
  Sex: Female

DRUGS (1)
  1. ASPIRIN [Suspect]
     Dosage: 100 MG, OM
     Route: 048
     Dates: start: 20110727

REACTIONS (1)
  - ANGIOEDEMA [None]
